FAERS Safety Report 7865472-9 (Version None)
Quarter: 2011Q4

REPORT INFORMATION
  Report Type: 
  Country: None (occurrence: None)
  Receive Date: 20111028
  Receipt Date: 20110104
  Transmission Date: 20120403
  Serious: No
  Sender: FDA-Public Use
  Company Number: US-GLAXOSMITHKLINE-A0902845A

PATIENT
  Age: 62 Year
  Sex: Female

DRUGS (14)
  1. PROAIR HFA [Concomitant]
  2. PREMARIN [Concomitant]
  3. LOSARTAN POTASSIUM [Concomitant]
  4. OXYCODONE HCL [Concomitant]
  5. FLUTICASONE PROPIONATE [Concomitant]
  6. MIRAPEX [Concomitant]
  7. LEVOTHYROXINE SODIUM [Concomitant]
  8. DILTIAZEM HCL [Concomitant]
  9. CITALOPRAM HYDROBROMIDE [Concomitant]
  10. ADVAIR DISKUS 100/50 [Suspect]
     Indication: CHRONIC OBSTRUCTIVE PULMONARY DISEASE
     Route: 055
     Dates: start: 20090101
  11. XOPENEX [Concomitant]
  12. VITAMIN B COMPLEX CAP [Concomitant]
  13. SIMVASTATIN [Concomitant]
  14. SPIRIVA [Concomitant]

REACTIONS (2)
  - DYSPNOEA [None]
  - CHEST DISCOMFORT [None]
